FAERS Safety Report 9596154 (Version 2)
Quarter: 2013Q4

REPORT INFORMATION
  Report Type: Report from Study
  Country: US (occurrence: US)
  Receive Date: 20131004
  Receipt Date: 20131004
  Transmission Date: 20140711
  Serious: Yes (Other)
  Sender: FDA-Public Use
  Company Number: US-ABBVIE-13P-163-1116261-00

PATIENT
  Age: 18 Year
  Sex: Female
  Weight: 81.72 kg

DRUGS (2)
  1. LUPRON DEPOT [Suspect]
     Indication: ENDOMETRIOSIS
     Dates: start: 201304
  2. IBUPROFEN [Concomitant]
     Indication: PAIN

REACTIONS (1)
  - Ligament injury [Recovered/Resolved]
